FAERS Safety Report 17908708 (Version 3)
Quarter: 2020Q3

REPORT INFORMATION
  Report Type: Report from Study
  Country: FR (occurrence: FR)
  Receive Date: 20200617
  Receipt Date: 20200925
  Transmission Date: 20201103
  Serious: Yes (Hospitalization)
  Sender: FDA-Public Use
  Company Number: FR-CELGENEUS-FRA-20200602888

PATIENT
  Age: 52 Year
  Sex: Female

DRUGS (32)
  1. REVLIMID [Suspect]
     Active Substance: LENALIDOMIDE
     Route: 048
     Dates: start: 20200518, end: 20200607
  2. CARFILZOMIB [Suspect]
     Active Substance: CARFILZOMIB
     Indication: PLASMA CELL MYELOMA
     Dosage: 31 MILLIGRAM
     Route: 042
     Dates: start: 20200224, end: 20200225
  3. CARFILZOMIB [Suspect]
     Active Substance: CARFILZOMIB
     Dosage: 55 MILLIGRAM?D16 = 55 MG ONCE A DAY
     Route: 042
     Dates: start: 20200302, end: 20200310
  4. DEXAMETHASONE. [Suspect]
     Active Substance: DEXAMETHASONE
     Route: 048
     Dates: start: 20200323, end: 20200331
  5. REVLIMID [Suspect]
     Active Substance: LENALIDOMIDE
     Route: 048
     Dates: start: 20200323, end: 20200412
  6. REVLIMID [Suspect]
     Active Substance: LENALIDOMIDE
     Route: 048
     Dates: start: 20200615
  7. CARFILZOMIB [Suspect]
     Active Substance: CARFILZOMIB
     Dosage: 55 MILLIGRAM
     Route: 042
     Dates: start: 20200420, end: 20200505
  8. DARATUMUMAB [Suspect]
     Active Substance: DARATUMUMAB
     Dosage: 820 MILLIGRAM
     Route: 042
     Dates: start: 20200420, end: 20200504
  9. CARFILZOMIB [Suspect]
     Active Substance: CARFILZOMIB
     Dosage: 55 MILLIGRAM
     Route: 042
     Dates: start: 20200518, end: 20200605
  10. DEXAMETHASONE. [Suspect]
     Active Substance: DEXAMETHASONE
     Indication: PLASMA CELL MYELOMA
     Dosage: 20 MILLIGRAM
     Route: 048
     Dates: start: 20200224, end: 20200317
  11. DEXAMETHASONE. [Suspect]
     Active Substance: DEXAMETHASONE
     Dosage: 8 MILLIGRAM
     Route: 048
     Dates: start: 20200515, end: 20200609
  12. REVLIMID [Suspect]
     Active Substance: LENALIDOMIDE
     Indication: PLASMA CELL MYELOMA
     Dosage: 25 MILLIGRAM
     Route: 048
     Dates: start: 20200224, end: 20200315
  13. DARATUMUMAB [Suspect]
     Active Substance: DARATUMUMAB
     Indication: PLASMA CELL MYELOMA
     Route: 042
     Dates: start: 20200224, end: 20200225
  14. DARATUMUMAB [Suspect]
     Active Substance: DARATUMUMAB
     Dosage: 820 MILLIGRAM
     Route: 042
     Dates: start: 20200302, end: 20200309
  15. DARATUMUMAB [Suspect]
     Active Substance: DARATUMUMAB
     Dosage: 820 MILLIGRAM
     Route: 042
     Dates: start: 20200518, end: 20200518
  16. DARATUMUMAB [Suspect]
     Active Substance: DARATUMUMAB
     Dosage: 820 MILLIGRAM
     Route: 042
     Dates: start: 20200615
  17. DEXAMETHASONE. [Suspect]
     Active Substance: DEXAMETHASONE
     Dosage: 8 MILLIGRAM
     Route: 048
     Dates: start: 20200420, end: 20200512
  18. CLOTIAZEPAM [Concomitant]
     Active Substance: CLOTIAZEPAM
     Indication: PRODUCT USED FOR UNKNOWN INDICATION
     Dosage: 10 MILLIGRAM
     Route: 065
     Dates: start: 20200505
  19. CARFILZOMIB [Suspect]
     Active Substance: CARFILZOMIB
     Dosage: 55 MILLIGRAM
     Route: 042
     Dates: start: 20200323, end: 20200407
  20. DARATUMUMAB [Suspect]
     Active Substance: DARATUMUMAB
     Dosage: 820 MILLIGRAM
     Route: 042
     Dates: start: 20200323, end: 20200414
  21. DEXAMETHASONE. [Suspect]
     Active Substance: DEXAMETHASONE
     Dosage: 8 MILLIGRAM
     Route: 048
     Dates: start: 20200615
  22. LEVOTHYROX [Concomitant]
     Active Substance: LEVOTHYROXINE
     Indication: PRODUCT USED FOR UNKNOWN INDICATION
     Dosage: 100 MICROGRAM
     Route: 065
     Dates: start: 2013
  23. VALACICLOVIR [Concomitant]
     Active Substance: VALACYCLOVIR HYDROCHLORIDE
     Indication: PRODUCT USED FOR UNKNOWN INDICATION
     Dosage: 1000 MILLIGRAM
     Route: 065
     Dates: start: 20200224
  24. LOVENOX [Concomitant]
     Active Substance: ENOXAPARIN SODIUM
     Indication: PRODUCT USED FOR UNKNOWN INDICATION
     Dosage: .4 MILLILITER
     Route: 065
     Dates: start: 20200224
  25. SKENAN [Concomitant]
     Active Substance: MORPHINE SULFATE
     Indication: PRODUCT USED FOR UNKNOWN INDICATION
     Dosage: 10 MILLIGRAM
     Route: 065
     Dates: start: 20200518
  26. ASPIRIN. [Concomitant]
     Active Substance: ASPIRIN
     Indication: HYPERSENSITIVITY
     Route: 065
  27. REVLIMID [Suspect]
     Active Substance: LENALIDOMIDE
     Route: 048
     Dates: start: 20200420, end: 20200510
  28. CARFILZOMIB [Suspect]
     Active Substance: CARFILZOMIB
     Dosage: 55 MILLIGRAM?D16 = 55 MG ONCE A DAY
     Route: 042
     Dates: start: 20200615
  29. DEXAMETHASONE. [Suspect]
     Active Substance: DEXAMETHASONE
     Route: 048
     Dates: start: 20200406, end: 20200415
  30. LOVENOX [Concomitant]
     Active Substance: ENOXAPARIN SODIUM
     Dosage: 1.2 MILLILITER
     Route: 065
  31. ERYTHROMYCIN. [Concomitant]
     Active Substance: ERYTHROMYCIN
     Indication: PRODUCT USED FOR UNKNOWN INDICATION
     Dosage: 1000 MILLIGRAM
     Route: 065
     Dates: start: 20200414
  32. CARFILZOMIB [Suspect]
     Active Substance: CARFILZOMIB
     Dosage: 55 MILLIGRAM?D16; = 55 MG ONCE A DAY
     Route: 042
     Dates: start: 20200302, end: 20200310

REACTIONS (1)
  - Jugular vein thrombosis [Recovered/Resolved]

NARRATIVE: CASE EVENT DATE: 20200605
